FAERS Safety Report 5660127-3 (Version None)
Quarter: 2008Q1

REPORT INFORMATION
  Report Type: 
  Country: None (occurrence: None)
  Receive Date: 20080311
  Receipt Date: 20070921
  Transmission Date: 20080703
  Serious: No
  Sender: FDA-Public Use
  Company Number: US-BAYER-200713061BCC

PATIENT
  Age: 66 Year
  Sex: Male
  Weight: 120 kg

DRUGS (4)
  1. ALEVE [Suspect]
     Indication: BACK PAIN
     Route: 048
     Dates: start: 20070916
  2. ASPIRIN [Concomitant]
  3. HIGH BLOOD PRESSURE MEDICATION [Concomitant]
  4. WATER PILL [Concomitant]

REACTIONS (1)
  - BLOOD PRESSURE INCREASED [None]
